FAERS Safety Report 24203966 (Version 1)
Quarter: 2024Q3

REPORT INFORMATION
  Report Type: Spontaneous
  Country: IT (occurrence: IT)
  Receive Date: 20240813
  Receipt Date: 20240813
  Transmission Date: 20241017
  Serious: Yes (Other)
  Sender: AUROBINDO
  Company Number: IT-MLMSERVICE-20240725-PI142868-00117-1

PATIENT
  Age: 74 Year
  Sex: Male

DRUGS (7)
  1. AZITHROMYCIN [Suspect]
     Active Substance: AZITHROMYCIN
     Indication: Antibiotic therapy
     Dosage: 500 MILLIGRAM, ONCE A DAY
     Route: 048
     Dates: start: 2021, end: 2021
  2. AMOXICILLIN [Suspect]
     Active Substance: AMOXICILLIN
     Indication: Bacterial infection
     Dosage: 1 GRAM, TWO TIMES A DAY
     Route: 065
     Dates: start: 2021, end: 2021
  3. AMOXICILLIN [Suspect]
     Active Substance: AMOXICILLIN
     Indication: Sinusitis
  4. CEFDITOREN PIVOXIL [Suspect]
     Active Substance: CEFDITOREN PIVOXIL
     Indication: Antibiotic therapy
     Dosage: 400 MILLIGRAM, TWO TIMES A DAY
     Route: 048
     Dates: start: 2021, end: 2021
  5. DEXAMETHASONE [Suspect]
     Active Substance: DEXAMETHASONE
     Indication: COVID-19
     Dosage: 4 MILLIGRAM, TWO TIMES A DAY
     Route: 065
     Dates: start: 2021, end: 2021
  6. MOMETASONE [Suspect]
     Active Substance: MOMETASONE
     Indication: Inflammation
     Dosage: UNK (50 MG SPRAY)
     Route: 065
     Dates: start: 2021, end: 2021
  7. ACETYLCYSTEINE [Concomitant]
     Active Substance: ACETYLCYSTEINE
     Indication: Bacterial infection
     Dosage: UNK
     Route: 065
     Dates: start: 2021, end: 2021

REACTIONS (5)
  - Mucormycosis [Recovered/Resolved]
  - Osteonecrosis of jaw [Recovered/Resolved]
  - Aspergillus infection [Recovered/Resolved]
  - Actinomycosis [Recovered/Resolved]
  - Staphylococcal infection [Recovered/Resolved]

NARRATIVE: CASE EVENT DATE: 20210101
